FAERS Safety Report 24298423 (Version 2)
Quarter: 2025Q2

REPORT INFORMATION
  Report Type: Spontaneous
  Country: US (occurrence: US)
  Receive Date: 20240909
  Receipt Date: 20250531
  Transmission Date: 20250716
  Serious: Yes (Death)
  Sender: STEMLINE THERAPEUTICS
  Company Number: US-STEMLINE THERAPEUTICS, INC-2024-STML-US004697

PATIENT

DRUGS (1)
  1. ELZONRIS [Suspect]
     Active Substance: TAGRAXOFUSP-ERZS
     Indication: Product used for unknown indication
     Route: 065
     Dates: start: 20240823

REACTIONS (1)
  - Pulmonary oedema [Fatal]
